FAERS Safety Report 7556942-1 (Version None)
Quarter: 2011Q2

REPORT INFORMATION
  Report Type: 
  Country: None (occurrence: None)
  Receive Date: 20110620
  Receipt Date: 20110607
  Transmission Date: 20111010
  Serious: Yes (Hospitalization, Other)
  Sender: FDA-Public Use
  Company Number: DE-ROCHE-677914

PATIENT
  Sex: Male
  Weight: 68 kg

DRUGS (20)
  1. PREDNISOLONE [Suspect]
     Route: 048
     Dates: start: 20101222
  2. METOPROLOL TARTRATE [Concomitant]
     Dosage: 1-0-0
     Route: 048
     Dates: start: 20060101
  3. TORSEMIDE [Concomitant]
     Dosage: 1-0-0
  4. CARBAMAZEPINE [Concomitant]
     Dosage: 1-0-1
  5. FENISTIL [Concomitant]
     Indication: PREMEDICATION
     Dosage: ALSO GIVEN ON 07 SEP 2009 AS PREMEDICATION PRIOR TO RITUXIMATB INFUSION.
     Route: 042
     Dates: start: 20090824
  6. COLCHICUM [Concomitant]
     Dosage: 1-1-1
  7. TOCILIZUMAB [Suspect]
     Indication: RHEUMATOID ARTHRITIS
     Dosage: APPLICATION ON 19 MAY, 16 JUN, 13 JUL AND 6 AUG 2009
     Route: 042
     Dates: start: 20090505, end: 20090806
  8. PREDNISOLONE [Suspect]
     Route: 048
     Dates: start: 20101201, end: 20101221
  9. RAMIPRIL PLUS [Concomitant]
     Dosage: 1-0-0
     Route: 048
     Dates: start: 20060101
  10. IBUPROFEN [Concomitant]
     Dosage: 1-1-1
  11. FRAXIPARIN [Concomitant]
     Dosage: 1-0-1
     Route: 058
  12. RITUXIMAB [Suspect]
     Indication: RHEUMATOID ARTHRITIS
     Dosage: ALSO GIVEN ON 07 SEP 2009.
     Route: 042
     Dates: start: 20090824, end: 20090907
  13. PREDNISOLONE [Suspect]
     Indication: RHEUMATOID ARTHRITIS
     Dosage: 1-0-0
     Route: 048
     Dates: start: 20070707, end: 20101201
  14. PREDNISOLONE [Suspect]
     Route: 048
  15. ACETAMINOPHEN [Concomitant]
     Indication: PREMEDICATION
     Dosage: ALSO GIVEN ON 07 SEP 2009 AS PREMEDICATION PRIOR TO RITUXIMATB INFUSION.
     Route: 048
     Dates: start: 20090824
  16. METHYLPREDNISOLONE [Suspect]
     Indication: RHEUMATOID ARTHRITIS
     Route: 042
     Dates: start: 20090824, end: 20090907
  17. FALITHROM [Concomitant]
     Dosage: PAUSED AT THE MOMENT
  18. ALLOPURINOL [Concomitant]
     Dosage: 2-0-0
  19. OXYGESIC [Concomitant]
     Dosage: 1-1-1
  20. PANTOPRAZOLE [Concomitant]
     Dosage: 1-0-0

REACTIONS (9)
  - INFECTED SKIN ULCER [None]
  - DEHYDRATION [None]
  - RENAL FAILURE ACUTE [None]
  - OSTEOMYELITIS [None]
  - HYDRONEPHROSIS [None]
  - PROSTATE INFECTION [None]
  - URETERIC STENOSIS [None]
  - URINARY TRACT INFECTION [None]
  - INCONTINENCE [None]
